FAERS Safety Report 18758066 (Version 2)
Quarter: 2021Q1

REPORT INFORMATION
  Report Type: Report from Study
  Country: MX (occurrence: MX)
  Receive Date: 20210119
  Receipt Date: 20210204
  Transmission Date: 20210419
  Serious: Yes (Other)
  Sender: FDA-Public Use
  Company Number: NVSC2021MX010687

PATIENT
  Age: 49 Year
  Sex: Female
  Weight: 61 kg

DRUGS (1)
  1. GALVUS MET [Suspect]
     Active Substance: METFORMIN HYDROCHLORIDE\VILDAGLIPTIN
     Indication: DIABETES MELLITUS
     Dosage: 1 DF (50/500 MG), BID, 2 OR MORE YEARS
     Route: 048

REACTIONS (4)
  - Blood glucose increased [Recovered/Resolved]
  - Feeling abnormal [Recovered/Resolved]
  - Hypertension [Unknown]
  - Kidney infection [Recovered/Resolved]

NARRATIVE: CASE EVENT DATE: 202012
